FAERS Safety Report 8821204 (Version 5)
Quarter: 2013Q3

REPORT INFORMATION
  Report Type: Spontaneous
  Country: US (occurrence: US)
  Receive Date: 20121002
  Receipt Date: 20130923
  Transmission Date: 20140515
  Serious: Yes (Hospitalization, Other)
  Sender: FDA-Public Use
  Company Number: US-009507513-1205USA00353

PATIENT
  Sex: Female
  Weight: 135 kg

DRUGS (15)
  1. FOSAMAX [Suspect]
     Indication: OSTEOPENIA
     Dosage: 70 MG, QW
     Route: 048
     Dates: start: 200201, end: 200803
  2. FOSAMAX [Suspect]
     Indication: OSTEOPOROSIS
  3. ALENDRONATE SODIUM [Suspect]
     Indication: OSTEOPENIA
     Dosage: 70 MG, QW
     Route: 048
     Dates: start: 200803, end: 201002
  4. ALENDRONATE SODIUM [Suspect]
     Indication: OSTEOPOROSIS
  5. SYNTHROID [Concomitant]
     Indication: HYPOTHYROIDISM
     Dosage: 75 MG, QD
     Route: 048
     Dates: start: 1970
  6. IMITREX (SUMATRIPTAN SUCCINATE) [Concomitant]
     Indication: MIGRAINE
     Dosage: UNK
     Dates: start: 2002
  7. AMITRIPTYLINE HYDROCHLORIDE [Concomitant]
     Indication: MIGRAINE
     Dosage: UNK
     Dates: start: 2000
  8. METOPROLOL [Concomitant]
     Indication: MIGRAINE
     Dosage: UNK
     Dates: start: 2000
  9. VITAMINS (UNSPECIFIED) [Concomitant]
  10. ASCORBIC ACID [Concomitant]
  11. VITAMIN B (UNSPECIFIED) [Concomitant]
  12. ESTRADIOL [Concomitant]
     Dosage: 1 MG, QD
  13. CALCIUM (UNSPECIFIED) (+) VITAMIN D (UNSPECIFIED) [Concomitant]
  14. CALCIUM (UNSPECIFIED) [Concomitant]
     Dosage: 1200 MG, QD
  15. FIORINAL (ASPIRIN (+) BUTALBITAL (+) CAFFEINE) [Concomitant]
     Indication: MIGRAINE

REACTIONS (31)
  - Intramedullary rod insertion [Unknown]
  - Intramedullary rod insertion [Unknown]
  - Femur fracture [Recovering/Resolving]
  - Femur fracture [Unknown]
  - Tooth extraction [Unknown]
  - Back disorder [Unknown]
  - Rib fracture [Recovered/Resolved]
  - Injury [Unknown]
  - Irritable bowel syndrome [Unknown]
  - Cough [Unknown]
  - Osteoarthritis [Unknown]
  - Pulmonary arterial pressure increased [Not Recovered/Not Resolved]
  - Tricuspid valve incompetence [Not Recovered/Not Resolved]
  - Cardiac murmur [Not Recovered/Not Resolved]
  - Tachycardia [Not Recovered/Not Resolved]
  - Hypertension [Not Recovered/Not Resolved]
  - Asthma [Unknown]
  - Urinary tract infection [Unknown]
  - Lumbar spinal stenosis [Unknown]
  - Paraesthesia [Unknown]
  - Intervertebral disc disorder [Unknown]
  - Myopathy [Unknown]
  - Pain in extremity [Unknown]
  - Pain in extremity [Unknown]
  - Drug ineffective [Unknown]
  - Neck pain [Unknown]
  - Headache [Unknown]
  - Pain in extremity [Unknown]
  - Muscle spasms [Unknown]
  - Gastrooesophageal reflux disease [Unknown]
  - Fatigue [Unknown]
